FAERS Safety Report 13391342 (Version 1)
Quarter: 2017Q1

REPORT INFORMATION
  Report Type: Spontaneous
  Country: DE (occurrence: DE)
  Receive Date: 20170331
  Receipt Date: 20170331
  Transmission Date: 20170429
  Serious: Yes (Other)
  Sender: FDA-Public Use
  Company Number: DE-PFIZER INC-2017131390

PATIENT
  Age: 70 Year
  Sex: Male
  Weight: 86 kg

DRUGS (1)
  1. ATORVASTATIN CALCIUM. [Suspect]
     Active Substance: ATORVASTATIN CALCIUM
     Indication: HYPERCHOLESTEROLAEMIA
     Dosage: 100 MG, UNK
     Route: 048
     Dates: start: 19970811

REACTIONS (6)
  - Skin atrophy [Unknown]
  - Impaired healing [Unknown]
  - Paraesthesia [Unknown]
  - Hypoaesthesia [Unknown]
  - Polyneuropathy [Recovered/Resolved with Sequelae]
  - Muscle atrophy [Unknown]

NARRATIVE: CASE EVENT DATE: 20070801
